FAERS Safety Report 8760491 (Version 2)
Quarter: 2012Q4

REPORT INFORMATION
  Report Type: Report from Study
  Country: IT (occurrence: IT)
  Receive Date: 20120830
  Receipt Date: 20121004
  Transmission Date: 20130627
  Serious: Yes (Hospitalization, Other)
  Sender: FDA-Public Use
  Company Number: IT-GENZYME-CLOF-1002248

PATIENT
  Age: 15 Year
  Sex: Female
  Weight: 40 kg

DRUGS (3)
  1. CLOFARABINE [Suspect]
     Indication: ACUTE LYMPHOCYTIC LEUKAEMIA RECURRENT
     Dosage: 20 mg/mq, qd
     Route: 042
     Dates: start: 20120716, end: 20120720
  2. ETOPOSIDE [Suspect]
     Indication: ACUTE LYMPHOCYTIC LEUKAEMIA RECURRENT
     Dosage: 100 mg/m2, qd
     Route: 065
     Dates: start: 20120716, end: 20120720
  3. CYCLOPHOSPHAMIDE [Suspect]
     Indication: ACUTE LYMPHOCYTIC LEUKAEMIA RECURRENT
     Dosage: 400 mg/m2, qd
     Route: 065
     Dates: start: 20120716, end: 20120720

REACTIONS (4)
  - Febrile neutropenia [Recovered/Resolved]
  - Periorbital cellulitis [Recovered/Resolved]
  - Pseudomonal sepsis [Recovered/Resolved]
  - Hypertransaminasaemia [Recovered/Resolved]
